FAERS Safety Report 12754883 (Version 1)
Quarter: 2016Q3

REPORT INFORMATION
  Report Type: Spontaneous
  Country: MX (occurrence: MX)
  Receive Date: 20160916
  Receipt Date: 20160916
  Transmission Date: 20161109
  Serious: Yes (Other)
  Sender: FDA-Public Use
  Company Number: MX-NOVOPROD-509478

PATIENT
  Age: 46 Year
  Sex: Male

DRUGS (1)
  1. SAXENDA [Suspect]
     Active Substance: LIRAGLUTIDE
     Indication: PRODUCT USED FOR UNKNOWN INDICATION
     Dosage: 1.8 MG, QD
     Route: 065
     Dates: start: 20160816, end: 20160906

REACTIONS (2)
  - Gastrooesophageal reflux disease [Unknown]
  - Bradycardia [Unknown]

NARRATIVE: CASE EVENT DATE: 20160906
